FAERS Safety Report 7010310-X (Version None)
Quarter: 2010Q3

REPORT INFORMATION
  Report Type: 
  Country: None (occurrence: None)
  Receive Date: 20100923
  Receipt Date: 20100916
  Transmission Date: 20110219
  Serious: Yes (Other)
  Sender: FDA-Public Use
  Company Number: A0882783A

PATIENT
  Age: 79 Year
  Sex: Female

DRUGS (2)
  1. ADVAIR DISKUS 100/50 [Suspect]
     Indication: ASTHMA
     Route: 055
     Dates: start: 20080905, end: 20100524
  2. FLONASE [Suspect]
     Indication: ASTHMA
     Dosage: 50MCG UNKNOWN
     Route: 045
     Dates: start: 20080905, end: 20100524

REACTIONS (1)
  - ASTHMA [None]
